FAERS Safety Report 5855066-9 (Version None)
Quarter: 2008Q3

REPORT INFORMATION
  Report Type: 
  Country: None (occurrence: None)
  Receive Date: 20080822
  Receipt Date: 20080619
  Transmission Date: 20090109
  Serious: No
  Sender: FDA-Public Use
  Company Number: US-ABBOTT-08P-163-0458757-00

PATIENT
  Sex: Female
  Weight: 65.83 kg

DRUGS (4)
  1. SYNTHROID [Suspect]
     Indication: HYPOTHYROIDISM
     Dosage: 25 MCG TABLETS, 1/2 EVERY DAY
     Dates: start: 20080614, end: 20080616
  2. TRANYLCYPROMINE SULFATE [Concomitant]
     Indication: DEPRESSION
     Dosage: USES ON AND OFF
  3. CHLORPHENIRAMINE MALEATE [Concomitant]
     Indication: ANTIALLERGIC THERAPY
     Dosage: 2 2 MG
  4. DIAZEPAM [Concomitant]
     Indication: AGITATION

REACTIONS (4)
  - AGITATION [None]
  - OROPHARYNGEAL DISCOMFORT [None]
  - PRURITUS [None]
  - URTICARIA [None]
